FAERS Safety Report 14572614 (Version 1)
Quarter: 2018Q1

REPORT INFORMATION
  Report Type: Spontaneous
  Country: AX (occurrence: AX)
  Receive Date: 20180219
  Receipt Date: 20180219
  Transmission Date: 20180509
  Serious: Yes (Hospitalization)
  Sender: FDA-Public Use
  Company Number: None

PATIENT
  Sex: Female

DRUGS (7)
  1. IMITREX [Concomitant]
     Active Substance: SUMATRIPTAN SUCCINATE
  2. CLARITHROMYC [Concomitant]
  3. DICLOFEN [Concomitant]
     Active Substance: DICLOFENAC SODIUM
  4. NUCALA [Suspect]
     Active Substance: MEPOLIZUMAB
     Dates: start: 20160915
  5. FUROSEMIDE. [Concomitant]
     Active Substance: FUROSEMIDE
  6. VALIUM [Concomitant]
     Active Substance: DIAZEPAM
  7. AZELASTINE. [Concomitant]
     Active Substance: AZELASTINE HYDROCHLORIDE

REACTIONS (1)
  - Oxygen saturation decreased [None]
